FAERS Safety Report 21057333 (Version 1)
Quarter: 2022Q3

REPORT INFORMATION
  Report Type: Spontaneous
  Country: US (occurrence: US)
  Receive Date: 20220708
  Receipt Date: 20220708
  Transmission Date: 20221027
  Serious: Yes (Other)
  Sender: FDA-Public Use
  Company Number: US-BAYER-2022A094558

PATIENT

DRUGS (2)
  1. ALEVE [Suspect]
     Active Substance: NAPROXEN SODIUM
     Indication: Pain
  2. ALEVE [Suspect]
     Active Substance: NAPROXEN SODIUM
     Indication: Inflammation

REACTIONS (3)
  - Renal disorder [None]
  - Contraindicated product administered [Unknown]
  - Renal impairment [Unknown]
